FAERS Safety Report 22930409 (Version 5)
Quarter: 2023Q4

REPORT INFORMATION
  Report Type: Report from Study
  Country: JP (occurrence: JP)
  Receive Date: 20230911
  Receipt Date: 20231114
  Transmission Date: 20240110
  Serious: Yes (Other)
  Sender: FDA-Public Use
  Company Number: JP-ONO-2023JP019892

PATIENT
  Age: 77 Year
  Sex: Male
  Weight: 58.5 kg

DRUGS (47)
  1. BRAFTOVI [Suspect]
     Active Substance: ENCORAFENIB
     Indication: Colon cancer
     Dosage: 300 MG, EVERYDAY
     Route: 048
     Dates: start: 20220616, end: 20220622
  2. BRAFTOVI [Suspect]
     Active Substance: ENCORAFENIB
     Dosage: 225 MG, EVERYDAY
     Route: 048
     Dates: start: 20220707, end: 20220713
  3. BRAFTOVI [Suspect]
     Active Substance: ENCORAFENIB
     Dosage: 225 MG, EVERYDAY
     Route: 048
     Dates: start: 20220721, end: 20220727
  4. BRAFTOVI [Suspect]
     Active Substance: ENCORAFENIB
     Dosage: 225 MG, EVERYDAY
     Route: 048
     Dates: start: 20220804, end: 20220810
  5. BRAFTOVI [Suspect]
     Active Substance: ENCORAFENIB
     Dosage: 225 MG, EVERYDAY
     Route: 048
     Dates: start: 20220818, end: 20220831
  6. BRAFTOVI [Suspect]
     Active Substance: ENCORAFENIB
     Dosage: 225 MG, EVERYDAY
     Route: 048
     Dates: start: 20220908, end: 20220921
  7. BRAFTOVI [Suspect]
     Active Substance: ENCORAFENIB
     Dosage: 225 MG, EVERYDAY
     Route: 048
     Dates: start: 20221006, end: 20221019
  8. BRAFTOVI [Suspect]
     Active Substance: ENCORAFENIB
     Dosage: 225 MG, EVERYDAY
     Route: 048
     Dates: start: 20221027, end: 20221102
  9. BRAFTOVI [Suspect]
     Active Substance: ENCORAFENIB
     Dosage: 225 MG, EVERYDAY
     Route: 048
     Dates: start: 20221110, end: 20221116
  10. BRAFTOVI [Suspect]
     Active Substance: ENCORAFENIB
     Dosage: 150 MG, EVERYDAY
     Route: 048
     Dates: start: 20221215, end: 20221221
  11. BRAFTOVI [Suspect]
     Active Substance: ENCORAFENIB
     Dosage: 150 MG, EVERYDAY
     Route: 048
     Dates: start: 20230105, end: 20230118
  12. BRAFTOVI [Suspect]
     Active Substance: ENCORAFENIB
     Dosage: 150 MG, EVERYDAY
     Route: 048
     Dates: start: 20230202, end: 20230215
  13. BRAFTOVI [Suspect]
     Active Substance: ENCORAFENIB
     Dosage: 150 MG, EVERYDAY
     Route: 048
     Dates: start: 20230302, end: 20230419
  14. BRAFTOVI [Suspect]
     Active Substance: ENCORAFENIB
     Dosage: 150 MG, EVERYDAY
     Route: 048
     Dates: start: 20230427, end: 20230503
  15. BRAFTOVI [Suspect]
     Active Substance: ENCORAFENIB
     Dosage: 150 MG, EVERYDAY
     Route: 048
     Dates: start: 20230518, end: 20230628
  16. BRAFTOVI [Suspect]
     Active Substance: ENCORAFENIB
     Dosage: 150 MG, EVERYDAY
     Route: 048
     Dates: start: 20230706
  17. MEKTOVI [Suspect]
     Active Substance: BINIMETINIB
     Indication: Colon cancer
     Dosage: 90 MG, EVERYDAY
     Route: 048
     Dates: start: 20220616, end: 20220622
  18. MEKTOVI [Suspect]
     Active Substance: BINIMETINIB
     Dosage: 60 MG, EVERYDAY
     Route: 048
     Dates: start: 20220707, end: 20220713
  19. MEKTOVI [Suspect]
     Active Substance: BINIMETINIB
     Dosage: 60 MG, EVERYDAY
     Route: 048
     Dates: start: 20220721, end: 20220727
  20. MEKTOVI [Suspect]
     Active Substance: BINIMETINIB
     Dosage: 60 MG, EVERYDAY
     Route: 048
     Dates: start: 20220804, end: 20220810
  21. MEKTOVI [Suspect]
     Active Substance: BINIMETINIB
     Dosage: 60 MG, EVERYDAY
     Route: 048
     Dates: start: 20220818, end: 20220831
  22. MEKTOVI [Suspect]
     Active Substance: BINIMETINIB
     Dosage: 60 MG, EVERYDAY
     Route: 048
     Dates: start: 20220908, end: 20220921
  23. MEKTOVI [Suspect]
     Active Substance: BINIMETINIB
     Dosage: 60 MG, EVERYDAY
     Route: 048
     Dates: start: 20221006, end: 20221019
  24. MEKTOVI [Suspect]
     Active Substance: BINIMETINIB
     Dosage: 60 MG, EVERYDAY
     Route: 048
     Dates: start: 20221027, end: 20221102
  25. MEKTOVI [Suspect]
     Active Substance: BINIMETINIB
     Dosage: 60 MG, EVERYDAY
     Route: 048
     Dates: start: 20221110, end: 20221116
  26. MEKTOVI [Suspect]
     Active Substance: BINIMETINIB
     Dosage: 30 MG, EVERYDAY
     Route: 048
     Dates: start: 20221215, end: 20221221
  27. MEKTOVI [Suspect]
     Active Substance: BINIMETINIB
     Dosage: 30 MG, EVERYDAY
     Route: 048
     Dates: start: 20230105, end: 20230118
  28. MEKTOVI [Suspect]
     Active Substance: BINIMETINIB
     Dosage: 30 MG, EVERYDAY
     Route: 048
     Dates: start: 20230202, end: 20230215
  29. MEKTOVI [Suspect]
     Active Substance: BINIMETINIB
     Dosage: 30 MG, EVERYDAY
     Route: 048
     Dates: start: 20230302, end: 20230419
  30. MEKTOVI [Suspect]
     Active Substance: BINIMETINIB
     Dosage: 30 MG, EVERYDAY
     Route: 048
     Dates: start: 20230427, end: 20230503
  31. MEKTOVI [Suspect]
     Active Substance: BINIMETINIB
     Dosage: 30 MG, EVERYDAY
     Route: 048
     Dates: start: 20230518, end: 20230628
  32. MEKTOVI [Suspect]
     Active Substance: BINIMETINIB
     Dosage: 30 MG, EVERYDAY
     Route: 048
     Dates: start: 20230706
  33. CETUXIMAB [Concomitant]
     Active Substance: CETUXIMAB
     Indication: Colon cancer
     Dosage: 400 MG/M2
     Route: 065
     Dates: start: 20220616, end: 20220622
  34. CETUXIMAB [Concomitant]
     Active Substance: CETUXIMAB
     Dosage: 250 MG/M2
     Route: 065
     Dates: start: 20220707, end: 20220713
  35. CETUXIMAB [Concomitant]
     Active Substance: CETUXIMAB
     Dosage: 225 MG/M2
     Route: 065
     Dates: start: 20220804, end: 20220810
  36. CETUXIMAB [Concomitant]
     Active Substance: CETUXIMAB
     Dosage: 225 MG/M2
     Route: 065
     Dates: start: 20220818, end: 20220831
  37. CETUXIMAB [Concomitant]
     Active Substance: CETUXIMAB
     Dosage: 225 MG/M2
     Route: 065
     Dates: start: 20220908, end: 20220921
  38. CETUXIMAB [Concomitant]
     Active Substance: CETUXIMAB
     Dosage: 225 MG/M2
     Route: 065
     Dates: start: 20221006, end: 20221019
  39. CETUXIMAB [Concomitant]
     Active Substance: CETUXIMAB
     Dosage: 225 MG/M2
     Route: 065
     Dates: start: 20221027, end: 20221102
  40. CETUXIMAB [Concomitant]
     Active Substance: CETUXIMAB
     Dosage: 225 MG/M2
     Route: 065
     Dates: start: 20221110, end: 20221116
  41. CETUXIMAB [Concomitant]
     Active Substance: CETUXIMAB
     Dosage: 225 MG/M2
     Route: 065
     Dates: start: 20221215, end: 20221221
  42. CETUXIMAB [Concomitant]
     Active Substance: CETUXIMAB
     Dosage: 225 MG/M2
     Route: 065
     Dates: start: 20230105, end: 20230118
  43. CETUXIMAB [Concomitant]
     Active Substance: CETUXIMAB
     Dosage: 225 MG/M2
     Route: 065
     Dates: start: 20230202, end: 20230215
  44. CETUXIMAB [Concomitant]
     Active Substance: CETUXIMAB
     Dosage: 225 MG/M2
     Route: 065
     Dates: start: 20230302, end: 20230419
  45. CETUXIMAB [Concomitant]
     Active Substance: CETUXIMAB
     Dosage: 225 MG/M2
     Route: 065
     Dates: start: 20230427, end: 20230503
  46. CETUXIMAB [Concomitant]
     Active Substance: CETUXIMAB
     Dosage: 225 MG/M2
     Route: 065
     Dates: start: 20230518, end: 20230628
  47. CETUXIMAB [Concomitant]
     Active Substance: CETUXIMAB
     Dosage: 225 MG/M2
     Route: 065
     Dates: start: 20230706

REACTIONS (11)
  - Gastric ulcer [Not Recovered/Not Resolved]
  - Dehydration [Recovered/Resolved]
  - Palmar-plantar erythrodysaesthesia syndrome [Recovering/Resolving]
  - Stomatitis [Recovered/Resolved]
  - Stomatitis [Recovering/Resolving]
  - Malaise [Recovering/Resolving]
  - Malaise [Recovering/Resolving]
  - Decreased appetite [Recovering/Resolving]
  - Decreased appetite [Recovering/Resolving]
  - Anaemia [Recovering/Resolving]
  - Anaemia [Recovering/Resolving]

NARRATIVE: CASE EVENT DATE: 20220623
